FAERS Safety Report 20103603 (Version 1)
Quarter: 2021Q4

REPORT INFORMATION
  Report Type: Spontaneous
  Country: US (occurrence: None)
  Receive Date: 20211123
  Receipt Date: 20211123
  Transmission Date: 20220303
  Serious: Yes (Disabling)
  Sender: FDA-Public Use
  Company Number: None

PATIENT
  Age: 34 Year
  Sex: Male
  Weight: 191.7 kg

DRUGS (3)
  1. AZITHROMYCIN [Suspect]
     Active Substance: AZITHROMYCIN
     Indication: Bronchitis
     Dosage: OTHER QUANTITY : 1 CAPSULE(S);?OTHER FREQUENCY : 2 DAY ONE, ONE RES;?
     Route: 048
     Dates: start: 20211013, end: 20211018
  2. CITALOPRAM [Concomitant]
     Active Substance: CITALOPRAM HYDROBROMIDE
  3. ALBUTEROL [Concomitant]
     Active Substance: ALBUTEROL

REACTIONS (13)
  - Dyspnoea [None]
  - Fatigue [None]
  - Gait disturbance [None]
  - Dyspnoea [None]
  - Headache [None]
  - Peripheral swelling [None]
  - Syncope [None]
  - Vision blurred [None]
  - Chest pain [None]
  - Hypertension [None]
  - Anxiety [None]
  - Cardiomegaly [None]
  - Suicidal ideation [None]

NARRATIVE: CASE EVENT DATE: 20211016
